FAERS Safety Report 8124751-0 (Version None)
Quarter: 2012Q1

REPORT INFORMATION
  Report Type: 
  Country: None (occurrence: None)
  Receive Date: 20120209
  Receipt Date: 20120203
  Transmission Date: 20120608
  Serious: Yes (Other)
  Sender: FDA-Public Use
  Company Number: US-PFIZER INC-2011297237

PATIENT
  Sex: Female

DRUGS (1)
  1. SUTENT [Suspect]
     Dosage: 50 MG, DAILY FOR 28 DAYS EVERY 42 DAYS
     Dates: start: 20111202, end: 20120115

REACTIONS (11)
  - HYPERTENSION [None]
  - DYSGEUSIA [None]
  - GLOSSODYNIA [None]
  - TINNITUS [None]
  - WHITE BLOOD CELL COUNT DECREASED [None]
  - WEIGHT DECREASED [None]
  - RHINORRHOEA [None]
  - HOT FLUSH [None]
  - HEADACHE [None]
  - DIARRHOEA [None]
  - URINARY TRACT INFECTION [None]
